FAERS Safety Report 5496648-6 (Version None)
Quarter: 2007Q4

REPORT INFORMATION
  Report Type: 
  Country: None (occurrence: None)
  Receive Date: 20071025
  Receipt Date: 20070627
  Transmission Date: 20080405
  Serious: No
  Sender: FDA-Public Use
  Company Number: A0660358A

PATIENT
  Age: 81 Year
  Sex: Female

DRUGS (8)
  1. ADVAIR DISKUS 100/50 [Suspect]
     Indication: ASTHMA
     Dosage: 1PUFF TWICE PER DAY
     Route: 055
     Dates: start: 20060901
  2. LASIX [Concomitant]
  3. SYNTHROID [Concomitant]
  4. COREG [Concomitant]
  5. LANVIS [Concomitant]
  6. REGULAR INSULIN [Concomitant]
  7. HYDROXYZINE [Concomitant]
  8. MULTI-VITAMIN [Concomitant]

REACTIONS (1)
  - DRY MOUTH [None]
